FAERS Safety Report 17486663 (Version 1)
Quarter: 2020Q1

REPORT INFORMATION
  Report Type: Spontaneous
  Country: DK (occurrence: DK)
  Receive Date: 20200303
  Receipt Date: 20200303
  Transmission Date: 20200409
  Serious: Yes (Hospitalization)
  Sender: FDA-Public Use
  Company Number: DK-ROCHE-2558671

PATIENT
  Age: 74 Year
  Sex: Male

DRUGS (2)
  1. AVASTIN [Suspect]
     Active Substance: BEVACIZUMAB
     Indication: COLON CANCER
     Dosage: STRENGTH: 25 MG/ML,?LAST DOSE MAY/2019
     Route: 042
     Dates: start: 201902
  2. XGEVA [Suspect]
     Active Substance: DENOSUMAB
     Indication: METASTATIC BONE DISEASE PROPHYLAXIS
     Route: 058
     Dates: start: 201508, end: 201909

REACTIONS (2)
  - Osteonecrosis of jaw [Recovering/Resolving]
  - Jaw operation [Unknown]

NARRATIVE: CASE EVENT DATE: 201909
